APPROVED DRUG PRODUCT: TETRABENAZINE
Active Ingredient: TETRABENAZINE
Strength: 25MG
Dosage Form/Route: TABLET;ORAL
Application: A208826 | Product #002 | TE Code: AB
Applicant: BIONPHARMA INC
Approved: Dec 18, 2017 | RLD: No | RS: No | Type: RX